FAERS Safety Report 9437724 (Version 1)
Quarter: 2013Q3

REPORT INFORMATION
  Report Type: Spontaneous
  Country: FR (occurrence: FR)
  Receive Date: 20130802
  Receipt Date: 20130802
  Transmission Date: 20140515
  Serious: Yes (Disabling)
  Sender: FDA-Public Use
  Company Number: PHHY2013FR081989

PATIENT
  Age: 75 Year
  Sex: Female

DRUGS (8)
  1. STALEVO [Suspect]
     Indication: PARKINSON^S DISEASE
     Dosage: 4 DF, QD
     Route: 048
     Dates: start: 201012, end: 2012
  2. STALEVO [Suspect]
     Dosage: 3 DF, QD
     Route: 048
     Dates: start: 2012
  3. PROPANOLOL [Suspect]
     Indication: ATRIAL FLUTTER
     Dosage: 40 MG, QD
     Route: 048
     Dates: start: 201012, end: 201303
  4. KARDEGIC [Concomitant]
     Dosage: UNK UKN, UNK
     Dates: start: 201012
  5. MELAXOSE [Concomitant]
     Dosage: UNK UKN, UNK
     Dates: start: 201012
  6. EDUCTYL [Concomitant]
     Dosage: UNK UKN, UNK
     Dates: start: 201012
  7. FLUIDABAK [Concomitant]
     Dosage: UNK UKN, UNK
     Dates: start: 201012
  8. LEVOTHYROX [Concomitant]
     Dosage: UNK UKN, UNK

REACTIONS (1)
  - Raynaud^s phenomenon [Not Recovered/Not Resolved]
